FAERS Safety Report 4541746-4 (Version None)
Quarter: 2004Q4

REPORT INFORMATION
  Report Type: 
  Country: None (occurrence: None)
  Receive Date: 20041227
  Receipt Date: 20041213
  Transmission Date: 20050328
  Serious: Yes (Hospitalization)
  Sender: FDA-Public Use
  Company Number: 2004114921

PATIENT
  Age: 76 Year
  Sex: Male
  Weight: 98 kg

DRUGS (13)
  1. SPIRONOLACTONE [Suspect]
     Indication: ILL-DEFINED DISORDER
     Dosage: 100 MG (50 MG, DAILY), ORAL
     Route: 048
  2. CLOXACILLIN SODIUM [Suspect]
     Indication: ARTHRITIS BACTERIAL
     Dosage: SEE IMAGE
     Route: 042
     Dates: start: 20040901, end: 20040914
  3. CLOXACILLIN SODIUM [Suspect]
     Indication: ARTHRITIS BACTERIAL
     Dosage: SEE IMAGE
     Route: 042
     Dates: start: 20040920, end: 20041007
  4. RIFAMPICIN [Suspect]
     Indication: ARTHRITIS BACTERIAL
     Dosage: ORAL
     Route: 048
     Dates: start: 20040914, end: 20040920
  5. LEVOFLOXACIN [Suspect]
     Indication: ARTHRITIS BACTERIAL
     Dosage: SEE IMAGE
     Route: 042
     Dates: start: 20040914, end: 20041006
  6. LEVOFLOXACIN [Suspect]
     Indication: ARTHRITIS BACTERIAL
     Dosage: SEE IMAGE
     Route: 042
     Dates: start: 20040901
  7. FUROSEMIDE [Suspect]
     Indication: ILL-DEFINED DISORDER
     Dosage: 40 MG (40 MG, DAILY), ORAL
     Route: 048
     Dates: start: 20040914, end: 20040921
  8. ACETAMINOPHEN [Suspect]
     Indication: ILL-DEFINED DISORDER
     Dosage: 6 DOSES FORMS (TID), ORAL
     Route: 048
     Dates: start: 20040914, end: 20040921
  9. VITAMIN B1 AND B6 (PYRIDOXINE, THIAMINE) [Concomitant]
  10. POTASSIUM CHLORIDE [Concomitant]
  11. DOMPERIDONE (DOMPERIDONE) [Concomitant]
  12. OXAZEPAM [Concomitant]
  13. LACTULOSE [Concomitant]

REACTIONS (6)
  - CHOLESTASIS [None]
  - CYTOLYTIC HEPATITIS [None]
  - HEPATIC CIRRHOSIS [None]
  - OEDEMA PERIPHERAL [None]
  - OESOPHAGEAL CANDIDIASIS [None]
  - PORTAL HYPERTENSION [None]
